FAERS Safety Report 7814063-4 (Version None)
Quarter: 2011Q4

REPORT INFORMATION
  Report Type: 
  Country: None (occurrence: None)
  Receive Date: 20111014
  Receipt Date: 20111006
  Transmission Date: 20120403
  Serious: Yes (Other)
  Sender: FDA-Public Use
  Company Number: IT-JNJFOC-20111003483

PATIENT
  Age: 34 Year
  Sex: Male

DRUGS (1)
  1. RISPERDAL [Suspect]
     Indication: PRODUCT USED FOR UNKNOWN INDICATION
     Route: 048
     Dates: start: 20110906

REACTIONS (2)
  - SELF INJURIOUS BEHAVIOUR [None]
  - INTENTIONAL OVERDOSE [None]
